FAERS Safety Report 14237204 (Version 3)
Quarter: 2018Q1

REPORT INFORMATION
  Report Type: Report from Study
  Country: US (occurrence: US)
  Receive Date: 20171129
  Receipt Date: 20180214
  Transmission Date: 20180508
  Serious: No
  Sender: FDA-Public Use
  Company Number: US-ALEXION PHARMACEUTICALS INC.-A201712773

PATIENT
  Sex: Female

DRUGS (2)
  1. STRENSIQ [Suspect]
     Active Substance: ASFOTASE ALFA
     Indication: PRODUCT USED FOR UNKNOWN INDICATION
     Dosage: 80 MG, UNK
     Route: 058
  2. STRENSIQ [Suspect]
     Active Substance: ASFOTASE ALFA
     Dosage: 80 MG, UNK
     Route: 058

REACTIONS (14)
  - Laryngitis [Unknown]
  - Injection site induration [Unknown]
  - Insomnia [Unknown]
  - Injection site erythema [Unknown]
  - Influenza [Recovering/Resolving]
  - Injection site pain [Unknown]
  - Injection site urticaria [Unknown]
  - Vision blurred [Unknown]
  - Injection site mass [Unknown]
  - Nasopharyngitis [Recovering/Resolving]
  - Influenza like illness [Unknown]
  - Injection site bruising [Unknown]
  - Tremor [Unknown]
  - Injection site pruritus [Unknown]

NARRATIVE: CASE EVENT DATE: 20171101
